FAERS Safety Report 22297433 (Version 1)
Quarter: 2023Q2

REPORT INFORMATION
  Report Type: Report from Study
  Country: US (occurrence: US)
  Receive Date: 20230509
  Receipt Date: 20230509
  Transmission Date: 20230722
  Serious: Yes (Other)
  Sender: FDA-Public Use
  Company Number: US-ABBVIE-4756744

PATIENT
  Sex: Female

DRUGS (1)
  1. SKYRIZI [Suspect]
     Active Substance: RISANKIZUMAB-RZAA
     Indication: Crohn^s disease
     Dosage: THE EVENT ONSET DATE OF INCREASE SEIZURE ONE OR TWO A DAY/MOST TIMES LIKE FLASH AND JOINT PAIN SH...
     Route: 058
     Dates: start: 20230223

REACTIONS (3)
  - Change in seizure presentation [Not Recovered/Not Resolved]
  - Arthralgia [Not Recovered/Not Resolved]
  - Fall [Unknown]
